FAERS Safety Report 4978210-4 (Version None)
Quarter: 2006Q2

REPORT INFORMATION
  Report Type: 
  Country: None (occurrence: None)
  Receive Date: 20060417
  Receipt Date: 20060412
  Transmission Date: 20061013
  Serious: Yes (Disabling)
  Sender: FDA-Public Use
  Company Number: 005953

PATIENT
  Age: 71 Year
  Sex: Male

DRUGS (4)
  1. ETHAMBUTOL HYDROCHLORIDE [Suspect]
     Indication: MYCOBACTERIUM AVIUM COMPLEX INFECTION
     Dosage: 1400 MG, QD, ORAL
     Route: 048
     Dates: start: 20040101, end: 20051001
  2. RIFAMPICIN [Suspect]
     Indication: MYCOBACTERIUM AVIUM COMPLEX INFECTION
     Dates: start: 20040101, end: 20050101
  3. CLARITHROMYCIN [Concomitant]
  4. LISINOPRIL W/HYDROCHLOROTHIAZIDE (LISINOPRIL) [Concomitant]

REACTIONS (9)
  - CATARACT [None]
  - CEREBRAL ATROPHY [None]
  - CEREBRAL ISCHAEMIA [None]
  - COLOUR BLINDNESS [None]
  - LACUNAR INFARCTION [None]
  - MACULOPATHY [None]
  - OPTIC ISCHAEMIC NEUROPATHY [None]
  - OPTIC NEUROPATHY [None]
  - RETINAL PIGMENT EPITHELIOPATHY [None]
